FAERS Safety Report 5389974-2 (Version None)
Quarter: 2007Q3

REPORT INFORMATION
  Report Type: 
  Country: None (occurrence: None)
  Receive Date: 20070718
  Receipt Date: 20070709
  Transmission Date: 20080115
  Serious: Yes (Death, Life-Threatening, Hospitalization, Disabling, Other)
  Sender: FDA-Public Use
  Company Number: GB-ASTRAZENECA-2000AP03901

PATIENT
  Age: 28347 Day
  Sex: Female
  Weight: 70.2 kg

DRUGS (10)
  1. ARIMIDEX [Suspect]
     Indication: BREAST CANCER
     Route: 048
     Dates: start: 19971113, end: 20000818
  2. ZOTON [Concomitant]
     Indication: GASTRIC ULCER
     Route: 048
     Dates: start: 19981120
  3. TENORETIC 100 [Concomitant]
     Indication: HYPERTENSION
     Route: 048
     Dates: start: 19890101
  4. SANDO K [Concomitant]
     Indication: PROPHYLAXIS
     Route: 048
     Dates: start: 19890101
  5. GLYCERYL TRINITRATE [Concomitant]
     Indication: ANGINA PECTORIS
     Route: 042
     Dates: start: 20000808, end: 20000809
  6. FRAGMIN [Concomitant]
     Dates: start: 20000808, end: 20000808
  7. HEPARIN [Concomitant]
     Indication: THROMBOSIS PROPHYLAXIS
     Route: 042
     Dates: start: 20000809, end: 20000809
  8. LISINOPRIL [Concomitant]
     Indication: ANGINA PECTORIS
     Dates: start: 20000809
  9. ATENOLOL [Concomitant]
     Indication: ANGINA PECTORIS
     Dates: start: 20000809
  10. DOPAMINE HCL [Concomitant]
     Dates: start: 20000816

REACTIONS (6)
  - ANGINA UNSTABLE [None]
  - CARDIAC ARREST [None]
  - CARDIAC FAILURE [None]
  - CORONARY ARTERY DISEASE [None]
  - MYOCARDIAL INFARCTION [None]
  - RESPIRATORY ARREST [None]
